FAERS Safety Report 7061555-4 (Version None)
Quarter: 2010Q4

REPORT INFORMATION
  Report Type: 
  Country: None (occurrence: None)
  Receive Date: 20101026
  Receipt Date: 20101018
  Transmission Date: 20110411
  Serious: Yes (Death, Hospitalization)
  Sender: FDA-Public Use
  Company Number: US-SANOFI-AVENTIS-2010SA056057

PATIENT
  Age: 59 Year
  Sex: Female
  Weight: 101 kg

DRUGS (7)
  1. MULTAQ [Suspect]
     Route: 048
     Dates: start: 20091129, end: 20100910
  2. SIMVASTATIN [Concomitant]
  3. DILTIAZEM [Concomitant]
     Indication: HYPERTENSION
  4. DILTIAZEM [Concomitant]
     Indication: ATRIAL FIBRILLATION
  5. FUROSEMIDE [Concomitant]
  6. RAMIPRIL [Concomitant]
     Indication: HYPERTENSION
  7. SPIRONOLACTONE [Concomitant]

REACTIONS (5)
  - CARDIAC ARREST [None]
  - ELECTROCARDIOGRAM QT PROLONGED [None]
  - HYPOXIC-ISCHAEMIC ENCEPHALOPATHY [None]
  - VENTRICULAR FIBRILLATION [None]
  - VENTRICULAR TACHYCARDIA [None]
